FAERS Safety Report 4803688-6 (Version None)
Quarter: 2005Q4

REPORT INFORMATION
  Report Type: 
  Country: None (occurrence: None)
  Receive Date: 20051014
  Receipt Date: 20051003
  Transmission Date: 20060501
  Serious: Yes (Death)
  Sender: FDA-Public Use
  Company Number: B0396226A

PATIENT
  Age: 43 Year
  Sex: Male

DRUGS (3)
  1. LAMICTAL [Suspect]
     Dosage: SEE DOSAGE TEXT/
  2. PHENYTOIN SODIUM [Concomitant]
  3. PHENOBARBITONE [Concomitant]

REACTIONS (1)
  - STEVENS-JOHNSON SYNDROME [None]
